FAERS Safety Report 5627393-1 (Version None)
Quarter: 2008Q1

REPORT INFORMATION
  Report Type: 
  Country: None (occurrence: None)
  Receive Date: 20080214
  Receipt Date: 20080214
  Transmission Date: 20080703
  Serious: No
  Sender: FDA-Public Use
  Company Number: None

PATIENT
  Age: 54 Year
  Sex: Female
  Weight: 112.4921 kg

DRUGS (1)
  1. LISINOPRIL AND HYDROCHLOROTHIAZIDE [Suspect]
     Indication: HYPERTENSION
     Dosage: ONE TABLET -20/25- DAILY PO
     Route: 048
     Dates: start: 20071015, end: 20080207

REACTIONS (14)
  - APHONIA [None]
  - ASTHENIA [None]
  - BRONCHOSPASM [None]
  - CHILLS [None]
  - COUGH [None]
  - DYSPHONIA [None]
  - DYSPNOEA [None]
  - FATIGUE [None]
  - INCONTINENCE [None]
  - MALAISE [None]
  - NAUSEA [None]
  - PYREXIA [None]
  - RESPIRATORY TRACT INFECTION [None]
  - VOMITING [None]
